FAERS Safety Report 7052237-3 (Version None)
Quarter: 2010Q4

REPORT INFORMATION
  Report Type: 
  Country: None (occurrence: None)
  Receive Date: 20101013
  Receipt Date: 20101007
  Transmission Date: 20110411
  Serious: Yes (Other)
  Sender: FDA-Public Use
  Company Number: CIP10002409

PATIENT
  Age: 33 Year
  Sex: Female

DRUGS (5)
  1. ACTONEL [Suspect]
     Dosage: 17.5 MG ONCE WEEKLY, ORAL
     Route: 048
     Dates: start: 20090706, end: 20100527
  2. PREDNISOLONE [Concomitant]
  3. FAMOTIDINE [Concomitant]
  4. PLETAL [Concomitant]
  5. MUCOSTA (REBAMIPIDE) [Concomitant]

REACTIONS (2)
  - ABORTION MISSED [None]
  - DRUG EXPOSURE DURING PREGNANCY [None]
